FAERS Safety Report 10098402 (Version 1)
Quarter: 2014Q2

REPORT INFORMATION
  Report Type: Spontaneous
  Country: US (occurrence: US)
  Receive Date: 20140423
  Receipt Date: 20140423
  Transmission Date: 20141212
  Serious: Yes (Hospitalization)
  Sender: FDA-Public Use
  Company Number: PHHY2014US048833

PATIENT
  Age: 55 Year
  Sex: Male
  Weight: 79.8 kg

DRUGS (6)
  1. DICLOFENAC [Suspect]
     Indication: RHEUMATOID ARTHRITIS
     Dosage: 75 MG, BID
     Route: 048
     Dates: start: 200810, end: 20131213
  2. TOFACITINIB CITRATE [Suspect]
     Indication: RHEUMATOID ARTHRITIS
     Dosage: 10 MG, BID
     Route: 048
     Dates: start: 20120104, end: 20131214
  3. ADVIL//IBUPROFEN [Suspect]
     Indication: RHEUMATOID ARTHRITIS
     Dosage: 2 DF, PRN
     Route: 048
     Dates: start: 1976, end: 20131213
  4. ADVIL//IBUPROFEN [Suspect]
     Dosage: UNK UKN, UNK
     Route: 048
  5. METHOTREXATE [Concomitant]
     Indication: RHEUMATOID ARTHRITIS
     Dosage: UNK UKN, UNK
     Dates: start: 20050818, end: 20131213
  6. FOLIC ACID [Concomitant]
     Indication: RHEUMATOID ARTHRITIS
     Dosage: UNK UKN, UNK
     Dates: start: 20130818, end: 20131213

REACTIONS (4)
  - Colonic abscess [Recovered/Resolved]
  - Diverticulitis [Recovered/Resolved]
  - Abdominal pain [Unknown]
  - Suprapubic pain [Unknown]
